FAERS Safety Report 11452857 (Version 1)
Quarter: 2015Q3

REPORT INFORMATION
  Report Type: Spontaneous
  Country: DE (occurrence: DE)
  Receive Date: 20150903
  Receipt Date: 20150903
  Transmission Date: 20151125
  Serious: Yes (Congenital Anomaly)
  Sender: FDA-Public Use
  Company Number: DE-PFIZER INC-2015286268

PATIENT
  Sex: Female
  Weight: 3.9 kg

DRUGS (6)
  1. SULFASALAZINE. [Suspect]
     Active Substance: SULFASALAZINE
     Indication: RHEUMATOID ARTHRITIS
     Dosage: 1000 MG, 2X/DAY (0. - 37.6 GESTATIONAL WEEK)
     Route: 064
     Dates: start: 20140516, end: 20150205
  2. RHINOSPRAY PLUS [Suspect]
     Active Substance: TRAMAZOLINE HYDROCHLORIDE
     Indication: NASAL CONGESTION
     Dosage: 5 MG/D DEPENDENT ON NOSE SPRAY (0. - 37.6 GESTATIONAL WEEK)
     Route: 064
     Dates: start: 20140516, end: 20150205
  3. ADVANTAN [Concomitant]
     Active Substance: CORTICOSTEROID NOS
     Indication: POLYMORPHIC ERUPTION OF PREGNANCY
     Dosage: SEVERAL TIMES THE DAY (31. - 37.6 GESTATIONAL WEEK)
     Route: 064
     Dates: start: 20141219, end: 20150205
  4. MOMETAHEXAL [Concomitant]
     Active Substance: MOMETASONE
     Indication: NASAL CONGESTION
     Dosage: 100 ?G, DAILY (0. - 37.6 GESTATIONAL WEEK)
     Route: 064
     Dates: start: 20140516, end: 20150205
  5. SYMBICORT [Concomitant]
     Active Substance: BUDESONIDE\FORMOTEROL FUMARATE DIHYDRATE
     Indication: ASTHMA
     Dosage: 160 MCG/D/ 9MCG/D PER DAY (0.- 37.6 GESTATIONAL WEEK)
     Route: 064
     Dates: start: 20140516, end: 20150205
  6. FOLSAEURE RATIOPHARM [Concomitant]
     Indication: PROPHYLAXIS OF NEURAL TUBE DEFECT
     Dosage: 5 MG, DAILY (0. - 37.6 GESTATIONAL WEEK)
     Route: 064
     Dates: start: 20140516, end: 20150205

REACTIONS (4)
  - Maternal exposure during pregnancy [Not Recovered/Not Resolved]
  - Caesarean section [None]
  - Maternal drugs affecting foetus [None]
  - Atrial septal defect [Not Recovered/Not Resolved]

NARRATIVE: CASE EVENT DATE: 20140516
